FAERS Safety Report 24104858 (Version 7)
Quarter: 2025Q1

REPORT INFORMATION
  Report Type: Spontaneous
  Country: US (occurrence: US)
  Receive Date: 20240717
  Receipt Date: 20250129
  Transmission Date: 20250408
  Serious: Yes (Hospitalization)
  Sender: PFIZER
  Company Number: US-PFIZER INC-PV202400092658

PATIENT
  Age: 72 Year
  Sex: Female
  Weight: 52.16 kg

DRUGS (2)
  1. PREMARIN [Suspect]
     Active Substance: ESTROGENS, CONJUGATED
     Indication: Hormone replacement therapy
     Dosage: 0.45 MG, DAILY
     Route: 048
     Dates: start: 2019
  2. LEVOTHYROXINE [Concomitant]
     Active Substance: LEVOTHYROXINE
     Dosage: 75 UG, 1X/DAY

REACTIONS (11)
  - Migraine [Unknown]
  - Insomnia [Unknown]
  - Feeling jittery [Unknown]
  - Aggression [Unknown]
  - Frustration tolerance decreased [Unknown]
  - Impatience [Unknown]
  - Social problem [Unknown]
  - Nausea [Unknown]
  - Vomiting [Unknown]
  - Mood altered [Unknown]
  - Product prescribing error [Unknown]
